FAERS Safety Report 6875647-3 (Version None)
Quarter: 2010Q3

REPORT INFORMATION
  Report Type: 
  Country: None (occurrence: None)
  Receive Date: 20100727
  Receipt Date: 20100716
  Transmission Date: 20110219
  Serious: Yes (Other)
  Sender: FDA-Public Use
  Company Number: US-ASTRAZENECA-2010SE33364

PATIENT
  Age: 79 Year
  Sex: Female

DRUGS (3)
  1. NEXIUM [Suspect]
     Indication: GASTROOESOPHAGEAL REFLUX DISEASE
     Route: 048
     Dates: end: 20060101
  2. OMEPRAZOLE [Suspect]
     Indication: GASTROOESOPHAGEAL REFLUX DISEASE
     Dosage: TOTAL DAILY DOSAGE 20 MG
     Route: 048
     Dates: start: 20060101
  3. PLAVIX [Concomitant]
     Indication: CEREBROVASCULAR ACCIDENT
     Dates: start: 20000101

REACTIONS (10)
  - BARRETT'S OESOPHAGUS [None]
  - CEREBROVASCULAR ACCIDENT [None]
  - DRUG DOSE OMISSION [None]
  - DRUG INEFFECTIVE [None]
  - DYSPEPSIA [None]
  - GASTRITIS [None]
  - GASTROINTESTINAL MOTILITY DISORDER [None]
  - GASTROOESOPHAGEAL REFLUX DISEASE [None]
  - OROPHARYNGEAL PAIN [None]
  - PERIPHERAL ARTERIAL OCCLUSIVE DISEASE [None]
